FAERS Safety Report 4421250-4 (Version None)
Quarter: 2004Q3

REPORT INFORMATION
  Report Type: 
  Country: None (occurrence: None)
  Receive Date: 20040707
  Receipt Date: 20040514
  Transmission Date: 20050211
  Serious: No
  Sender: FDA-Public Use
  Company Number: SU-2004-002364

PATIENT
  Age: 41 Year
  Sex: Male
  Weight: 74.8435 kg

DRUGS (3)
  1. BENICAR HCT [Suspect]
     Indication: HYPERTENSION
     Dosage: 20.125 MG QD PO
     Route: 048
     Dates: start: 20040513
  2. KLONOPIN [Concomitant]
  3. LIPITOR [Concomitant]

REACTIONS (3)
  - COLD SWEAT [None]
  - DIZZINESS [None]
  - NAUSEA [None]
